FAERS Safety Report 20444358 (Version 2)
Quarter: 2022Q2

REPORT INFORMATION
  Report Type: Spontaneous
  Country: US (occurrence: US)
  Receive Date: 20220208
  Receipt Date: 20220408
  Transmission Date: 20220721
  Serious: No
  Sender: FDA-Public Use
  Company Number: US-SA-SAC20220205000235

PATIENT
  Age: 41 Year
  Sex: Female

DRUGS (19)
  1. AUBAGIO [Suspect]
     Active Substance: TERIFLUNOMIDE
     Indication: Multiple sclerosis
     Dosage: 14 MG, QD
     Route: 048
  2. MUCINEX [Concomitant]
     Active Substance: GUAIFENESIN
     Dosage: 1200 MG, Q12H
     Route: 065
  3. LORAZEPAM [Concomitant]
     Active Substance: LORAZEPAM
     Dosage: 0.5 MG
     Route: 065
  4. HERBALS\LINSEED OIL [Concomitant]
     Active Substance: HERBALS\LINSEED OIL
     Dosage: 1000 MG
     Route: 065
  5. TYLENOL [Concomitant]
     Active Substance: ACETAMINOPHEN
     Dosage: 325 MG
     Route: 065
  6. FISH OIL [Concomitant]
     Active Substance: FISH OIL
     Dosage: 1000 MG
  7. VITAMIN D3 [Concomitant]
     Active Substance: CHOLECALCIFEROL
     Dosage: 10 UG
  8. LISINOPRIL [Concomitant]
     Active Substance: LISINOPRIL
     Dosage: 10 MG
     Route: 065
  9. OMEPRAZOLE [Concomitant]
     Active Substance: OMEPRAZOLE
     Dosage: 100% POWDER
  10. XIIDRA [Concomitant]
     Active Substance: LIFITEGRAST
     Dosage: 5 %
  11. BACLOFEN [Concomitant]
     Active Substance: BACLOFEN
     Indication: Multiple sclerosis
     Dosage: 100 % POWDER
  12. HIZENTRA [Concomitant]
     Active Substance: HUMAN IMMUNOGLOBULIN G
     Dosage: 10 G/50 ML VIAL
  13. DIPHENHYDRAMINE [Concomitant]
     Active Substance: DIPHENHYDRAMINE
  14. LIDOCAINE [Concomitant]
     Active Substance: LIDOCAINE
     Dosage: 4 %
     Route: 065
  15. EPINEPHRINE [Concomitant]
     Active Substance: EPINEPHRINE
     Dosage: AUTO-INJECTOR,
     Route: 065
  16. NAPROXEN [Concomitant]
     Active Substance: NAPROXEN
     Dosage: 250 MG
     Route: 065
  17. FLONASE ALLERGY RELIEF [Concomitant]
     Active Substance: FLUTICASONE PROPIONATE
     Dosage: UNK
     Route: 065
  18. SUMATRIPTAN SUCCINATE [Concomitant]
     Active Substance: SUMATRIPTAN SUCCINATE
     Dosage: 25 MG
     Route: 065
  19. VITAMINS [Concomitant]
     Active Substance: VITAMINS

REACTIONS (3)
  - Nasopharyngitis [Unknown]
  - Body temperature increased [Unknown]
  - Blood pressure increased [Unknown]

NARRATIVE: CASE EVENT DATE: 20220101
